FAERS Safety Report 16648628 (Version 5)
Quarter: 2019Q3

REPORT INFORMATION
  Report Type: Spontaneous
  Country: JP (occurrence: JP)
  Receive Date: 20190730
  Receipt Date: 20190930
  Transmission Date: 20191004
  Serious: Yes (Death, Hospitalization, Other)
  Sender: FDA-Public Use
  Company Number: JP-ASTELLAS-2019JP000594

PATIENT
  Age: 79 Year
  Sex: Female

DRUGS (2)
  1. XOSPATA [Suspect]
     Active Substance: GILTERITINIB
     Indication: ACUTE MYELOID LEUKAEMIA
     Route: 048
     Dates: start: 20181208
  2. XOSPATA [Suspect]
     Active Substance: GILTERITINIB
     Dosage: UNK UNK, UNKNOWN FREQ.
     Route: 048

REACTIONS (7)
  - Rash [Recovered/Resolved]
  - Death [Fatal]
  - Herpes zoster [Not Recovered/Not Resolved]
  - Blast cell count increased [Unknown]
  - Cytopenia [Unknown]
  - Hepatic function abnormal [Recovering/Resolving]
  - Tumour marker increased [Unknown]

NARRATIVE: CASE EVENT DATE: 20190718
